FAERS Safety Report 17268000 (Version 1)
Quarter: 2020Q1

REPORT INFORMATION
  Report Type: Spontaneous
  Country: US (occurrence: US)
  Receive Date: 20200114
  Receipt Date: 20200114
  Transmission Date: 20200409
  Serious: No
  Sender: FDA-Public Use
  Company Number: US-HORIZON-KRY-0043-2020

PATIENT
  Sex: Male

DRUGS (6)
  1. COLCHICINE. [Concomitant]
     Active Substance: COLCHICINE
  2. IBUPROFEN. [Concomitant]
     Active Substance: IBUPROFEN
  3. ZYRTEC [Concomitant]
     Active Substance: CETIRIZINE HYDROCHLORIDE
  4. KRYSTEXXA [Suspect]
     Active Substance: PEGLOTICASE
     Indication: GOUT
     Dates: start: 20191001, end: 20191210
  5. TYLENOL [Concomitant]
     Active Substance: ACETAMINOPHEN
  6. HYDROCORTISONE. [Concomitant]
     Active Substance: HYDROCORTISONE

REACTIONS (3)
  - Somnolence [Recovered/Resolved]
  - Infusion related reaction [Recovered/Resolved]
  - Blood uric acid increased [Unknown]

NARRATIVE: CASE EVENT DATE: 20191210
